FAERS Safety Report 6085001-2 (Version None)
Quarter: 2009Q1

REPORT INFORMATION
  Report Type: 
  Country: None (occurrence: None)
  Receive Date: 20090218
  Receipt Date: 20090211
  Transmission Date: 20090719
  Serious: Yes (Hospitalization)
  Sender: FDA-Public Use
  Company Number: 20096215

PATIENT
  Sex: Female

DRUGS (1)
  1. LIORESAL [Suspect]
     Indication: MUSCLE SPASTICITY
     Dosage: 900 MCG, DAILY, INTRATHECAL
     Route: 037

REACTIONS (6)
  - CONVULSION [None]
  - IMPAIRED HEALING [None]
  - INAPPROPRIATE DEVICE PROGRAMMING [None]
  - OVERDOSE [None]
  - SEDATION [None]
  - WITHDRAWAL SYNDROME [None]
